FAERS Safety Report 8325116-9 (Version None)
Quarter: 2012Q2

REPORT INFORMATION
  Report Type: 
  Country: None (occurrence: None)
  Receive Date: 20120501
  Receipt Date: 20120229
  Transmission Date: 20120825
  Serious: No
  Sender: FDA-Public Use
  Company Number: US-ABBOTT-12P-163-0909974-00

PATIENT
  Sex: Male

DRUGS (4)
  1. CREON [Suspect]
     Indication: IRRITABLE BOWEL SYNDROME
     Dosage: CREON 12: TWO CAPSULES WITH EACH MEAL
  2. CREON [Suspect]
     Indication: PANCREATITIS
  3. CREON [Suspect]
     Indication: ABDOMINAL PAIN
     Dosage: CREON 24: 2 CAPS EACH MEAL, 1 WITH SNACK
     Dates: start: 20120201
  4. CREON [Suspect]
     Indication: DIARRHOEA

REACTIONS (4)
  - IRRITABLE BOWEL SYNDROME [None]
  - DIARRHOEA [None]
  - ABDOMINAL PAIN [None]
  - OFF LABEL USE [None]
